FAERS Safety Report 7680366-X (Version None)
Quarter: 2011Q3

REPORT INFORMATION
  Report Type: 
  Country: None (occurrence: None)
  Receive Date: 20110812
  Receipt Date: 20110809
  Transmission Date: 20111222
  Serious: Yes (Other)
  Sender: FDA-Public Use
  Company Number: GB-GLAXOSMITHKLINE-B0738269A

PATIENT
  Sex: Male

DRUGS (5)
  1. FERROUS SULFATE TAB [Concomitant]
     Indication: ANAEMIA
     Route: 065
     Dates: start: 20100225, end: 20100301
  2. M-M-RVAXPRO [Suspect]
     Route: 064
     Dates: start: 20090619, end: 20090619
  3. M-M-RVAXPRO [Suspect]
     Indication: IMMUNISATION
     Route: 064
     Dates: start: 20090515, end: 20090515
  4. PEPTAC [Suspect]
     Indication: GASTROOESOPHAGEAL REFLUX DISEASE
     Route: 064
     Dates: start: 20091208
  5. AMOXICILLIN [Suspect]
     Indication: LOWER RESPIRATORY TRACT INFECTION
     Route: 064
     Dates: start: 20090930, end: 20091007

REACTIONS (2)
  - FAILURE TO THRIVE [None]
  - MATERNAL EXPOSURE DURING PREGNANCY [None]
